FAERS Safety Report 8522462-0 (Version None)
Quarter: 2012Q3

REPORT INFORMATION
  Report Type: 
  Country: None (occurrence: None)
  Receive Date: 20120719
  Receipt Date: 20120712
  Transmission Date: 20120928
  Serious: Yes (Death, Hospitalization)
  Sender: FDA-Public Use
  Company Number: PH-BAXTER-2012BAX008822

PATIENT
  Sex: Male

DRUGS (5)
  1. OMEPRAZOLE [Concomitant]
     Route: 065
  2. HEPARIN [Concomitant]
     Dosage: 300 UNITS PER LITER OF PD SOLUTION
     Route: 065
  3. DIANEAL PD-2 W/ DEXTROSE 1.5% [Suspect]
     Dosage: X3
     Route: 033
     Dates: start: 20120223, end: 20120612
  4. TRAMADOL HYDROCHLORIDE [Concomitant]
     Route: 065
  5. DIANEAL PD-2 W/ DEXTROSE 4.25% [Suspect]
     Dosage: X1
     Route: 033
     Dates: start: 20120223, end: 20120612

REACTIONS (4)
  - RENAL FAILURE [None]
  - PERITONEAL DIALYSIS COMPLICATION [None]
  - GASTROINTESTINAL INFLAMMATION [None]
  - PERITONITIS [None]
